FAERS Safety Report 9180212 (Version 2)
Quarter: 2013Q2

REPORT INFORMATION
  Report Type: Spontaneous
  Country: GR (occurrence: GR)
  Receive Date: 20130322
  Receipt Date: 20130529
  Transmission Date: 20140414
  Serious: Yes (Other)
  Sender: FDA-Public Use
  Company Number: GR-ABBOTT-13X-066-1064458-00

PATIENT
  Age: 35 Year
  Sex: Male

DRUGS (2)
  1. LIPIDIL [Suspect]
     Indication: DYSLIPIDAEMIA
     Dates: start: 201303, end: 201303
  2. INEGY [Concomitant]
     Indication: DYSLIPIDAEMIA

REACTIONS (2)
  - Chest pain [Recovered/Resolved]
  - Bradycardia [Recovered/Resolved]
